FAERS Safety Report 5317805-5 (Version None)
Quarter: 2007Q2

REPORT INFORMATION
  Report Type: 
  Country: None (occurrence: None)
  Receive Date: 20070507
  Receipt Date: 20070410
  Transmission Date: 20071010
  Serious: Yes (Other)
  Sender: FDA-Public Use
  Company Number: CN-BAYER-200712265GDS

PATIENT
  Sex: Male

DRUGS (1)
  1. NEXAVAR [Suspect]
     Indication: NEOPLASM MALIGNANT
     Route: 048

REACTIONS (3)
  - ABDOMINAL PAIN [None]
  - ATRIAL FIBRILLATION [None]
  - DIARRHOEA [None]
